FAERS Safety Report 11180407 (Version 2)
Quarter: 2015Q2

REPORT INFORMATION
  Report Type: Spontaneous
  Country: JP (occurrence: None)
  Receive Date: 20150609
  Receipt Date: 20150622
  Transmission Date: 20150821
  Serious: Yes (Hospitalization, Other)
  Sender: FDA-Public Use
  Company Number: JP2015JPN074179

PATIENT
  Sex: Male

DRUGS (4)
  1. VIREAD (TENOFOVIR DISOPROXIL FUMARATE) [Concomitant]
  2. REYATAZ [Concomitant]
     Active Substance: ATAZANAVIR SULFATE
  3. NORVIR [Concomitant]
     Active Substance: RITONAVIR
  4. EPIVIR [Suspect]
     Active Substance: LAMIVUDINE
     Route: 048

REACTIONS (10)
  - Pyrexia [None]
  - Renal atrophy [None]
  - Cerebral atrophy [None]
  - AIDS dementia complex [None]
  - Psychotic disorder [None]
  - Benign prostatic hyperplasia [None]
  - Treatment noncompliance [None]
  - Single functional kidney [None]
  - Tuberculosis [None]
  - Pleural effusion [None]
